FAERS Safety Report 10501308 (Version 1)
Quarter: 2014Q4

REPORT INFORMATION
  Report Type: Spontaneous
  Country: US (occurrence: None)
  Receive Date: 20141006
  Receipt Date: 20141006
  Transmission Date: 20150528
  Serious: Yes (Life-Threatening, Hospitalization, Disabling)
  Sender: FDA-Public Use
  Company Number: None

PATIENT
  Age: 74 Year
  Sex: Male
  Weight: 104.33 kg

DRUGS (7)
  1. STATIN [Concomitant]
     Active Substance: UNSPECIFIED INGREDIENT
  2. ASPIRIN. [Concomitant]
     Active Substance: ASPIRIN
  3. OXYGEN TANKS [Concomitant]
  4. PREDNISONE. [Concomitant]
     Active Substance: PREDNISONE
  5. XARELTO [Concomitant]
     Active Substance: RIVAROXABAN
  6. AMIODARONE [Suspect]
     Active Substance: AMIODARONE
     Indication: ARRHYTHMIA
     Dosage: 1 PILL
     Route: 048
     Dates: start: 20140603, end: 20140627
  7. DILTIAM [Concomitant]

REACTIONS (4)
  - Insomnia [None]
  - Cardiac failure congestive [None]
  - Toxicity to various agents [None]
  - Hypersensitivity [None]

NARRATIVE: CASE EVENT DATE: 201406
